FAERS Safety Report 4337608-8 (Version None)
Quarter: 2004Q2

REPORT INFORMATION
  Report Type: 
  Country: None (occurrence: None)
  Receive Date: 20040413
  Receipt Date: 20030509
  Transmission Date: 20050107
  Serious: No
  Sender: FDA-Public Use
  Company Number: US-GLAXOSMITHKLINE-A0407798A

PATIENT
  Age: 4 Year
  Sex: Male

DRUGS (1)
  1. DEXEDRINE [Suspect]
     Indication: ILL-DEFINED DISORDER
     Route: 048
     Dates: end: 20030405

REACTIONS (2)
  - EATING DISORDER [None]
  - INSOMNIA [None]
